FAERS Safety Report 10430361 (Version 1)
Quarter: 2014Q3

REPORT INFORMATION
  Report Type: Spontaneous
  Country: US (occurrence: None)
  Receive Date: 20140903
  Receipt Date: 20140903
  Transmission Date: 20150326
  Serious: No
  Sender: FDA-Public Use
  Company Number: None

PATIENT
  Age: 27 Year
  Sex: Female
  Weight: 84.37 kg

DRUGS (1)
  1. DIFLUCAN [Suspect]
     Active Substance: FLUCONAZOLE
     Indication: FUNGAL INFECTION
     Dosage: 1 PILL  ONCE DAILY TAKEN BY MOUTH
     Route: 048

REACTIONS (4)
  - Eye irritation [None]
  - Eye pruritus [None]
  - Eye burns [None]
  - Eye swelling [None]

NARRATIVE: CASE EVENT DATE: 20140901
